FAERS Safety Report 6266367-7 (Version None)
Quarter: 2009Q3

REPORT INFORMATION
  Report Type: 
  Country: None (occurrence: None)
  Receive Date: 20090713
  Receipt Date: 20090702
  Transmission Date: 20100115
  Serious: Yes (Hospitalization, Other)
  Sender: FDA-Public Use
  Company Number: PHHY2009BR27118

PATIENT
  Sex: Female

DRUGS (4)
  1. CARBAMAZEPINE [Suspect]
     Indication: TRIGEMINAL NEURALGIA
     Dosage: 1 DF, BID
     Route: 048
     Dates: start: 19910101
  2. LEXOTAN [Concomitant]
     Indication: NERVOUSNESS
     Dosage: HALF OR ONE FOURTH TABLETS
     Route: 048
  3. ANTIHYPERTENSIVE DRUGS [Concomitant]
     Indication: BLOOD PRESSURE
     Dosage: UNK
  4. CILOSTAZOL [Concomitant]
     Dosage: 50 MG
     Route: 048
     Dates: start: 20070201

REACTIONS (9)
  - BLOOD PRESSURE ABNORMAL [None]
  - BLOOD PRESSURE INADEQUATELY CONTROLLED [None]
  - DIZZINESS [None]
  - ESCHERICHIA INFECTION [None]
  - FALL [None]
  - GAIT DISTURBANCE [None]
  - HEAD INJURY [None]
  - LOSS OF CONSCIOUSNESS [None]
  - URINARY TRACT INFECTION [None]
